FAERS Safety Report 8960485 (Version 2)
Quarter: 2013Q1

REPORT INFORMATION
  Report Type: Spontaneous
  Country: DK (occurrence: None)
  Receive Date: 20121203
  Receipt Date: 20121205
  Transmission Date: 20140127
  Serious: Yes (Hospitalization)
  Sender: FDA-Public Use
  Company Number: 2012MA013663

PATIENT
  Age: 73 Year
  Sex: Male
  Weight: 63 kg

DRUGS (9)
  1. IRINOTECAN HYDROCHLORIDE [Suspect]
     Indication: COLORECTAL CANCER
     Dosage: 297 MG: Q2W: IV NOS
     Route: 042
     Dates: start: 20111129, end: 20111212
  2. OXALIPLATIN [Suspect]
     Indication: COLORECTAL CANCER
     Dosage: 153 MG;Q2W: IV NOS
     Route: 042
     Dates: start: 20111129, end: 20111212
  3. FLUOROURACIL (FLUOROURACIL) [Suspect]
     Indication: COLORECTAL CANCER
     Dosage: 2880 MG;Q2W; IV NOS
     Route: 042
     Dates: start: 20111129, end: 20111212
  4. BEVACIZUMAB [Suspect]
     Dosage: 330 MG; Q2W; IV NOS
     Route: 042
     Dates: start: 20111129, end: 20111212
  5. CALCIUM FOLINATE [Suspect]
     Indication: COLORECTAL CANCER
     Dosage: 360 MG; BIDQW: IVNOS
     Route: 042
     Dates: start: 20111129, end: 20111212
  6. FINASTERIDE [Concomitant]
  7. ATORVASTATIN [Concomitant]
  8. RAMIPRIL [Concomitant]
  9. ACETYLSALICYLIC ACID [Concomitant]

REACTIONS (1)
  - Lower respiratory tract infection [None]
